FAERS Safety Report 23354117 (Version 1)
Quarter: 2024Q1

REPORT INFORMATION
  Report Type: Spontaneous
  Country: US (occurrence: US)
  Receive Date: 20240101
  Receipt Date: 20240101
  Transmission Date: 20240410
  Serious: No
  Sender: FDA-Public Use
  Company Number: US-SA-SAC20231222000559

PATIENT
  Sex: Male

DRUGS (16)
  1. DUPIXENT [Suspect]
     Active Substance: DUPILUMAB
     Indication: Dermatitis atopic
     Dosage: 300 MG, QOW
     Route: 058
     Dates: start: 20210925
  2. ATENOLOL [Concomitant]
     Active Substance: ATENOLOL
  3. BYSTOLIC [Concomitant]
     Active Substance: NEBIVOLOL HYDROCHLORIDE
  4. CLOBETASOL [Concomitant]
     Active Substance: CLOBETASOL
  5. HYDROXYZINE HYDROCHLORIDE [Concomitant]
     Active Substance: HYDROXYZINE HYDROCHLORIDE
  6. CLONIDINE [Concomitant]
     Active Substance: CLONIDINE
  7. FLUOCINONIDE [Concomitant]
     Active Substance: FLUOCINONIDE
  8. GABAPENTIN [Concomitant]
     Active Substance: GABAPENTIN
  9. INDOMETHACIN [Concomitant]
     Active Substance: INDOMETHACIN
  10. PIMECROLIMUS [Concomitant]
     Active Substance: PIMECROLIMUS
  11. SIMVASTATIN [Concomitant]
     Active Substance: SIMVASTATIN
  12. TACROLIMUS [Concomitant]
     Active Substance: TACROLIMUS
  13. TESTOSTERONE CYPIONATE [Concomitant]
     Active Substance: TESTOSTERONE CYPIONATE
  14. TRIAMCINOLONE [Concomitant]
     Active Substance: TRIAMCINOLONE
  15. SIMVASTATIN [Concomitant]
     Active Substance: SIMVASTATIN
  16. CLONIDINE [Concomitant]
     Active Substance: CLONIDINE

REACTIONS (4)
  - Rash [Unknown]
  - Discomfort [Unknown]
  - Sleep disorder due to a general medical condition [Unknown]
  - Drug ineffective [Unknown]
